FAERS Safety Report 18495720 (Version 1)
Quarter: 2020Q4

REPORT INFORMATION
  Report Type: Spontaneous
  Country: US (occurrence: US)
  Receive Date: 20201112
  Receipt Date: 20201112
  Transmission Date: 20210114
  Serious: Yes (Hospitalization)
  Sender: FDA-Public Use
  Company Number: None

PATIENT
  Age: 33 Year
  Sex: Female
  Weight: 153 kg

DRUGS (11)
  1. PREDNISONE. [Concomitant]
     Active Substance: PREDNISONE
  2. DESVENLAFAXINE. [Concomitant]
     Active Substance: DESVENLAFAXINE
  3. ESCITALOPRAM [Concomitant]
     Active Substance: ESCITALOPRAM OXALATE
  4. IBUPROFEN. [Concomitant]
     Active Substance: IBUPROFEN
  5. FERROUS SULFATE. [Concomitant]
     Active Substance: FERROUS SULFATE
  6. PRENATAL VITAMINS [Concomitant]
     Active Substance: VITAMINS
  7. ALPRAZOLAM. [Concomitant]
     Active Substance: ALPRAZOLAM
  8. REMICADE [Suspect]
     Active Substance: INFLIXIMAB
     Indication: CROHN^S DISEASE
     Dosage: ?          OTHER FREQUENCY:ONCE;?
     Route: 042
     Dates: start: 20201001, end: 20201001
  9. STRESS B [Concomitant]
  10. DEPLIN [Concomitant]
     Active Substance: LEVOMEFOLATE CALCIUM
  11. LORATADINE. [Concomitant]
     Active Substance: LORATADINE

REACTIONS (6)
  - Extra dose administered [None]
  - Swollen tongue [None]
  - Hypoaesthesia oral [None]
  - Mouth swelling [None]
  - Dysphagia [None]
  - Paraesthesia oral [None]

NARRATIVE: CASE EVENT DATE: 20201001
